FAERS Safety Report 8599275-7 (Version None)
Quarter: 2012Q3

REPORT INFORMATION
  Report Type: 
  Country: None (occurrence: None)
  Receive Date: 20120816
  Receipt Date: 20120604
  Transmission Date: 20120928
  Serious: No
  Sender: FDA-Public Use
  Company Number: US-AMGEN-USASP2012035064

PATIENT
  Age: 57 Year
  Sex: Female

DRUGS (1)
  1. NEUPOGEN [Suspect]
     Indication: WHITE BLOOD CELL COUNT DECREASED
     Dosage: UNK
     Route: 058

REACTIONS (2)
  - INJECTION SITE PAIN [None]
  - PARAESTHESIA [None]
